FAERS Safety Report 23755384 (Version 2)
Quarter: 2024Q3

REPORT INFORMATION
  Report Type: Spontaneous
  Country: NL (occurrence: NL)
  Receive Date: 20240418
  Receipt Date: 20240719
  Transmission Date: 20241016
  Serious: Yes (Other)
  Sender: BAUSCH AND LOMB
  Company Number: NL-MLMSERVICE-20151201-0093317-1

PATIENT
  Age: 10 Year
  Sex: Female

DRUGS (2)
  1. HYDROCORTISONE [Suspect]
     Active Substance: HYDROCORTISONE\HYDROCORTISONE ACETATE
     Indication: Adrenocorticotropic hormone deficiency
     Dosage: LOW DOSE
     Route: 065
  2. HYDROCORTISONE [Suspect]
     Active Substance: HYDROCORTISONE\HYDROCORTISONE ACETATE
     Indication: Adrenocortical insufficiency acute
     Dosage: LOW DOSE (RESTARTED)
     Route: 065

REACTIONS (1)
  - Weight increased [Unknown]
